FAERS Safety Report 15919035 (Version 1)
Quarter: 2019Q1

REPORT INFORMATION
  Report Type: Report from Study
  Country: CO (occurrence: CO)
  Receive Date: 20190205
  Receipt Date: 20190205
  Transmission Date: 20190417
  Serious: Yes (Other)
  Sender: FDA-Public Use
  Company Number: CO-JNJFOC-20190138841

PATIENT
  Age: 27 Year
  Sex: Male
  Weight: 127 kg

DRUGS (1)
  1. INVEGA SUSTENNA [Suspect]
     Active Substance: PALIPERIDONE PALMITATE
     Indication: SCHIZOPHRENIA
     Route: 030
     Dates: start: 20150317, end: 20180824

REACTIONS (3)
  - Weight increased [Unknown]
  - Hepatic steatosis [Unknown]
  - Dysphonia [Unknown]

NARRATIVE: CASE EVENT DATE: 20190115
